FAERS Safety Report 5766044-2 (Version None)
Quarter: 2008Q2

REPORT INFORMATION
  Report Type: 
  Country: None (occurrence: None)
  Receive Date: 20080611
  Receipt Date: 20080530
  Transmission Date: 20081010
  Serious: Yes (Hospitalization, Other)
  Sender: FDA-Public Use
  Company Number: US-PFIZER INC-2008046298

PATIENT
  Sex: Male
  Weight: 84.09 kg

DRUGS (3)
  1. DILANTIN [Suspect]
     Indication: BRAIN INJURY
     Dosage: DAILY DOSE:300MG
     Route: 048
  2. DILANTIN [Suspect]
     Indication: BRAIN INJURY
     Dosage: DAILY DOSE:300MG
     Route: 048
  3. VITAMINS [Concomitant]

REACTIONS (2)
  - CONVULSION [None]
  - DRUG INEFFECTIVE [None]
